FAERS Safety Report 12643242 (Version 1)
Quarter: 2016Q3

REPORT INFORMATION
  Report Type: Spontaneous
  Country: US (occurrence: US)
  Receive Date: 20160811
  Receipt Date: 20160811
  Transmission Date: 20161109
  Serious: No
  Sender: FDA-Public Use
  Company Number: US-BEH-2016072344

PATIENT
  Sex: Female
  Weight: 79.37 kg

DRUGS (23)
  1. HIZENTRA [Suspect]
     Active Substance: HUMAN IMMUNOGLOBULIN G
     Indication: STATUS ASTHMATICUS
     Dosage: UNK
     Route: 058
  2. LIDOCAINE. [Concomitant]
     Active Substance: LIDOCAINE
  3. SYMBICORT [Concomitant]
     Active Substance: BUDESONIDE\FORMOTEROL FUMARATE DIHYDRATE
  4. SINGULAIR [Concomitant]
     Active Substance: MONTELUKAST SODIUM
  5. NEXIUM [Concomitant]
     Active Substance: ESOMEPRAZOLE MAGNESIUM
  6. HIZENTRA [Suspect]
     Active Substance: HUMAN IMMUNOGLOBULIN G
     Dosage: 7 G, QW
     Route: 058
     Dates: start: 20120213
  7. DIPHENHYDRAMINE. [Concomitant]
     Active Substance: DIPHENHYDRAMINE
  8. HYDROCHLOROTHIAZIDE. [Concomitant]
     Active Substance: HYDROCHLOROTHIAZIDE
  9. ACETAMINOPHEN. [Concomitant]
     Active Substance: ACETAMINOPHEN
  10. XOPENEX [Concomitant]
     Active Substance: LEVALBUTEROL HYDROCHLORIDE
  11. EPIPEN [Concomitant]
     Active Substance: EPINEPHRINE
  12. DEPO-PROVERA [Concomitant]
     Active Substance: MEDROXYPROGESTERONE ACETATE
  13. HIZENTRA [Suspect]
     Active Substance: HUMAN IMMUNOGLOBULIN G
     Indication: RHINITIS ALLERGIC
     Route: 058
  14. HIZENTRA [Suspect]
     Active Substance: HUMAN IMMUNOGLOBULIN G
     Dosage: UNK
     Route: 058
  15. LEVAQUIN [Concomitant]
     Active Substance: LEVOFLOXACIN
  16. AMBIEN [Concomitant]
     Active Substance: ZOLPIDEM TARTRATE
  17. NASONEX [Concomitant]
     Active Substance: MOMETASONE FUROATE
  18. NASONEX [Concomitant]
     Active Substance: MOMETASONE FUROATE
  19. ASTELIN                            /00085801/ [Concomitant]
     Active Substance: AZELASTINE HYDROCHLORIDE
  20. ALBUTEROL                          /00139501/ [Concomitant]
     Active Substance: ALBUTEROL
  21. AMLODIPINE [Concomitant]
     Active Substance: AMLODIPINE BESYLATE
  22. DAILY MULTIPLE VITAMINS WITH IRON [Concomitant]
  23. CALCIUM +VIT D [Concomitant]
     Active Substance: CALCIUM\VITAMIN D

REACTIONS (2)
  - Pruritus generalised [Unknown]
  - Dysphonia [Unknown]
